FAERS Safety Report 18219302 (Version 1)
Quarter: 2020Q3

REPORT INFORMATION
  Report Type: Spontaneous
  Country: US (occurrence: US)
  Receive Date: 20200901
  Receipt Date: 20200901
  Transmission Date: 20201103
  Serious: No
  Sender: FDA-Public Use
  Company Number: US-TEVA-2020-US-1820640

PATIENT
  Sex: Male

DRUGS (2)
  1. DIABETIC PATCH [Concomitant]
     Route: 065
  2. CLONIDINE HYDROCHLORIDE. [Suspect]
     Active Substance: CLONIDINE HYDROCHLORIDE
     Indication: BLOOD PRESSURE ABNORMAL
     Route: 062

REACTIONS (2)
  - Application site pruritus [Unknown]
  - Wrong technique in product usage process [Unknown]
